FAERS Safety Report 13465226 (Version 1)
Quarter: 2017Q2

REPORT INFORMATION
  Report Type: Spontaneous
  Country: US (occurrence: US)
  Receive Date: 20170421
  Receipt Date: 20170421
  Transmission Date: 20170830
  Serious: No
  Sender: FDA-Public Use
  Company Number: US-TEVA-722570ACC

PATIENT
  Sex: Male
  Weight: 95 kg

DRUGS (1)
  1. FINASTERIDE. [Suspect]
     Active Substance: FINASTERIDE

REACTIONS (1)
  - Skin odour abnormal [Not Recovered/Not Resolved]
